FAERS Safety Report 11184464 (Version 5)
Quarter: 2015Q3

REPORT INFORMATION
  Report Type: Spontaneous
  Country: FR (occurrence: FR)
  Receive Date: 20150612
  Receipt Date: 20150908
  Transmission Date: 20151125
  Serious: Yes (Other)
  Sender: FDA-Public Use
  Company Number: FR-BRISTOL-MYERS SQUIBB COMPANY-BMS-2015-036254

PATIENT
  Age: 32 Year
  Sex: Male
  Weight: 55 kg

DRUGS (9)
  1. ABILIFY [Suspect]
     Active Substance: ARIPIPRAZOLE
     Dosage: 5 MG, QD
     Route: 048
  2. ABILIFY [Suspect]
     Active Substance: ARIPIPRAZOLE
     Dosage: 15 MG, TID
     Route: 048
     Dates: start: 20130916, end: 20130922
  3. ZYPREXA [Concomitant]
     Active Substance: OLANZAPINE
     Indication: SCHIZOPHRENIA, DISORGANISED TYPE
     Dosage: UNK
     Route: 065
     Dates: start: 201312
  4. ABILIFY [Suspect]
     Active Substance: ARIPIPRAZOLE
     Indication: SCHIZOPHRENIA, DISORGANISED TYPE
     Dosage: 15 MG, TID
     Route: 048
     Dates: start: 20130701, end: 20131014
  5. LEXOMIL [Concomitant]
     Active Substance: BROMAZEPAM
     Indication: SCHIZOPHRENIA, DISORGANISED TYPE
     Dosage: 6 MG, TID
     Route: 065
     Dates: start: 201312
  6. TERCIAN                            /00759301/ [Concomitant]
     Active Substance: CYAMEMAZINE
     Indication: PRODUCT USED FOR UNKNOWN INDICATION
     Dosage: 25 MG, QD
     Route: 065
  7. ABILIFY [Suspect]
     Active Substance: ARIPIPRAZOLE
     Dosage: 15 MG, TID
     Route: 048
     Dates: start: 20131007, end: 20131013
  8. ABILIFY [Suspect]
     Active Substance: ARIPIPRAZOLE
     Dosage: 15 MG, QD
     Route: 048
     Dates: start: 20131014
  9. ABILIFY [Suspect]
     Active Substance: ARIPIPRAZOLE
     Dosage: 15 MG, TID
     Route: 048
     Dates: start: 20130923, end: 20131006

REACTIONS (4)
  - Ophthalmic vein thrombosis [Recovering/Resolving]
  - Off label use [Unknown]
  - Overdose [Unknown]
  - Visual impairment [Recovering/Resolving]

NARRATIVE: CASE EVENT DATE: 20130916
